FAERS Safety Report 11620831 (Version 1)
Quarter: 2015Q4

REPORT INFORMATION
  Report Type: Spontaneous
  Country: US (occurrence: None)
  Receive Date: 20151012
  Receipt Date: 20151012
  Transmission Date: 20160304
  Serious: No
  Sender: FDA-Public Use
  Company Number: US-MDT-ADR-2015-01939

PATIENT
  Sex: Male

DRUGS (2)
  1. BUPIVACAINE INTRATHECAL (15 MG/ML) [Suspect]
     Active Substance: BUPIVACAINE
     Dosage: 5.101 MG/DAY
  2. BACLOFEN INTRATHECAL [Suspect]
     Active Substance: BACLOFEN

REACTIONS (7)
  - General physical health deterioration [None]
  - Muscle disorder [None]
  - Pelvic pain [None]
  - Prostatic disorder [None]
  - Pain [None]
  - Blood sodium decreased [None]
  - Peripheral swelling [None]
